FAERS Safety Report 14188898 (Version 1)
Quarter: 2017Q4

REPORT INFORMATION
  Report Type: Report from Study
  Country: None (occurrence: BR)
  Receive Date: 20171114
  Receipt Date: 20171114
  Transmission Date: 20180321
  Serious: Yes (Other)
  Sender: FDA-Public Use
  Company Number: BR-ABBVIE-17K-020-2157645-00

PATIENT
  Sex: Female
  Weight: 84 kg

DRUGS (6)
  1. DIOVAN [Concomitant]
     Active Substance: VALSARTAN
     Indication: BLOOD PRESSURE ABNORMAL
  2. CLOPIDOGREL [Concomitant]
     Active Substance: CLOPIDOGREL BISULFATE
     Indication: BLOOD CHOLESTEROL ABNORMAL
  3. HUMIRA [Suspect]
     Active Substance: ADALIMUMAB
     Indication: RHEUMATOID ARTHRITIS
     Route: 058
     Dates: start: 20150128
  4. CLOPIDOGREL [Concomitant]
     Active Substance: CLOPIDOGREL BISULFATE
     Indication: ARTHROPATHY
  5. ROSUCOR [Concomitant]
     Active Substance: ROSUVASTATIN CALCIUM
     Indication: ARTERIAL DISORDER
  6. SERTRALINE [Concomitant]
     Active Substance: SERTRALINE HYDROCHLORIDE
     Indication: ANXIETY

REACTIONS (30)
  - Fatigue [Not Recovered/Not Resolved]
  - Depressed mood [Not Recovered/Not Resolved]
  - Back pain [Not Recovered/Not Resolved]
  - Urinary incontinence [Recovering/Resolving]
  - Arthralgia [Not Recovered/Not Resolved]
  - Cataract [Unknown]
  - Dry eye [Not Recovered/Not Resolved]
  - Back injury [Recovered/Resolved]
  - Medical device implantation [Recovered/Resolved]
  - Spinal fracture [Unknown]
  - Impatience [Not Recovered/Not Resolved]
  - Dysphonia [Recovering/Resolving]
  - Arthralgia [Unknown]
  - Cough [Recovering/Resolving]
  - Joint injury [Recovered/Resolved]
  - Fall [Recovered/Resolved]
  - Transient ischaemic attack [Recovered/Resolved]
  - Somnolence [Not Recovered/Not Resolved]
  - Respiratory disorder [Recovering/Resolving]
  - Dyspnoea [Recovering/Resolving]
  - Device material opacification [Not Recovered/Not Resolved]
  - Road traffic accident [Recovered/Resolved]
  - Mood altered [Not Recovered/Not Resolved]
  - Cardiac disorder [Recovering/Resolving]
  - Catarrh [Recovering/Resolving]
  - Alopecia [Not Recovered/Not Resolved]
  - Visual impairment [Not Recovered/Not Resolved]
  - Musculoskeletal chest pain [Unknown]
  - Discomfort [Unknown]
  - Vision blurred [Not Recovered/Not Resolved]

NARRATIVE: CASE EVENT DATE: 2015
